FAERS Safety Report 25425049 (Version 5)
Quarter: 2025Q4

REPORT INFORMATION
  Report Type: Spontaneous
  Country: CO (occurrence: CO)
  Receive Date: 20250611
  Receipt Date: 20251008
  Transmission Date: 20260118
  Serious: No
  Sender: PFIZER
  Company Number: CO-PFIZER INC-PV202500069098

PATIENT
  Age: 12 Year
  Sex: Male
  Weight: 28 kg

DRUGS (1)
  1. GENOTROPIN [Suspect]
     Active Substance: SOMATROPIN
     Indication: Short stature
     Dosage: 1 ML, 1X/DAY
     Route: 058

REACTIONS (6)
  - Drug dose omission by device [Recovered/Resolved]
  - Device issue [Recovered/Resolved]
  - Device leakage [Recovered/Resolved]
  - Device malfunction [Recovered/Resolved]
  - Expired device used [Recovered/Resolved]
  - Off label use [Unknown]

NARRATIVE: CASE EVENT DATE: 20250605
